FAERS Safety Report 13575761 (Version 1)
Quarter: 2017Q2

REPORT INFORMATION
  Report Type: Spontaneous
  Country: US (occurrence: US)
  Receive Date: 20170524
  Receipt Date: 20170524
  Transmission Date: 20170830
  Serious: No
  Sender: FDA-Public Use
  Company Number: US-TEVA-771851ACC

PATIENT
  Age: 27 Year
  Sex: Female
  Weight: 79 kg

DRUGS (1)
  1. PLAN B ONE-STEP [Suspect]
     Active Substance: LEVONORGESTREL
     Indication: POST COITAL CONTRACEPTION

REACTIONS (2)
  - Chills [Unknown]
  - Discomfort [Unknown]

NARRATIVE: CASE EVENT DATE: 20170517
